FAERS Safety Report 4880655-8 (Version None)
Quarter: 2006Q1

REPORT INFORMATION
  Report Type: 
  Country: None (occurrence: None)
  Receive Date: 20060113
  Receipt Date: 20050317
  Transmission Date: 20060701
  Serious: Yes (Hospitalization, Other)
  Sender: FDA-Public Use
  Company Number: US-MERCK-0503USA03403

PATIENT
  Age: 50 Year
  Sex: Male
  Weight: 91 kg

DRUGS (30)
  1. NITROGLYCERIN [Concomitant]
     Route: 065
  2. ISOSORBIDE [Concomitant]
     Route: 065
  3. DILTIAZEM HYDROCHLORIDE [Concomitant]
     Route: 065
  4. TEMAZEPAM [Concomitant]
     Route: 065
  5. AMIODARONE [Concomitant]
     Route: 065
  6. FAMOTIDINE [Concomitant]
     Route: 065
  7. NIASPAN [Concomitant]
     Route: 065
  8. NEURONTIN [Concomitant]
     Route: 065
  9. CIALIS [Concomitant]
     Route: 065
  10. ZOCOR [Concomitant]
     Route: 065
  11. PLAVIX [Concomitant]
     Route: 065
  12. VASOTEC [Concomitant]
     Route: 065
  13. LOPID [Concomitant]
     Route: 065
  14. DIABETA [Concomitant]
     Route: 065
  15. LOPRESSOR [Concomitant]
     Route: 065
  16. VIOXX [Suspect]
     Indication: SHOULDER PAIN
     Route: 048
     Dates: start: 19980101, end: 20040901
  17. IBUPROFEN [Concomitant]
     Route: 065
  18. NAPROSYN [Concomitant]
     Route: 065
  19. GLUCOVANCE [Concomitant]
     Route: 065
  20. VICODIN [Concomitant]
     Route: 065
  21. TYLENOL W/ CODEINE NO. 3 [Concomitant]
     Route: 065
  22. VALIUM [Concomitant]
     Route: 065
  23. AMOXIL [Concomitant]
     Route: 065
  24. PHENERGAN TABLETS/SUPPOSITORIES [Concomitant]
     Route: 065
  25. MECLIZINE [Concomitant]
     Route: 065
  26. VIAGRA [Concomitant]
     Route: 065
  27. ATENOLOL [Concomitant]
     Route: 065
  28. ASPIRIN [Concomitant]
     Route: 065
  29. INSULIN [Concomitant]
     Route: 065
  30. LIPITOR [Concomitant]
     Route: 065

REACTIONS (16)
  - ABDOMINAL PAIN [None]
  - ACUTE CORONARY SYNDROME [None]
  - ANGINA PECTORIS [None]
  - ATRIAL FIBRILLATION [None]
  - BACK PAIN [None]
  - BRONCHITIS [None]
  - CHEST PAIN [None]
  - CORONARY ARTERY DISEASE [None]
  - DIABETES MELLITUS [None]
  - DYSPNOEA [None]
  - HEADACHE [None]
  - HYPERLIPIDAEMIA [None]
  - HYPERTENSION [None]
  - MYOCARDIAL INFARCTION [None]
  - PNEUMONIA [None]
  - RENAL FAILURE [None]
